FAERS Safety Report 7178478-2 (Version None)
Quarter: 2010Q4

REPORT INFORMATION
  Report Type: 
  Country: None (occurrence: None)
  Receive Date: 20101220
  Receipt Date: 20101217
  Transmission Date: 20110411
  Serious: Yes (Life-Threatening, Hospitalization, Other)
  Sender: FDA-Public Use
  Company Number: HU-AMGEN-KDC441671

PATIENT

DRUGS (5)
  1. PANITUMUMAB [Suspect]
     Indication: COLORECTAL CANCER
     Dosage: 540 MG, UNK
     Route: 042
     Dates: start: 20100412, end: 20100510
  2. CAPECITABINE [Suspect]
     Dosage: 3600 MG, UNK
     Route: 048
     Dates: start: 20100419, end: 20100509
  3. RADIATION THERAPY [Suspect]
     Dosage: UNK UNK, UNK
     Dates: start: 20100419, end: 20100521
  4. ASPIRIN [Concomitant]
     Dosage: 100 MG, UNK
     Route: 048
     Dates: start: 20040101
  5. FRAXIPARINE                        /01437701/ [Concomitant]
     Dosage: 0.4 ML, UNK
     Dates: start: 20100707

REACTIONS (3)
  - ABDOMINAL ABSCESS [None]
  - INTESTINAL ANASTOMOSIS COMPLICATION [None]
  - PERITONITIS [None]
